FAERS Safety Report 5696870-X (Version None)
Quarter: 2008Q2

REPORT INFORMATION
  Report Type: 
  Country: None (occurrence: None)
  Receive Date: 20080408
  Receipt Date: 20061218
  Transmission Date: 20081010
  Serious: No
  Sender: FDA-Public Use
  Company Number: US-BAYER-US-2006-039804

PATIENT
  Age: 35 Year
  Sex: Female
  Weight: 66 kg

DRUGS (3)
  1. YASMIN [Suspect]
     Indication: OVARIAN CYST
     Route: 048
     Dates: start: 20060601
  2. NO CONCOMITANT MEDICATION [Concomitant]
  3. AVELOX [Concomitant]
     Indication: SINUSITIS
     Dates: start: 20061122, end: 20061212

REACTIONS (8)
  - ABDOMINAL DISTENSION [None]
  - ABDOMINAL PAIN [None]
  - AMENORRHOEA [None]
  - CHILLS [None]
  - HYPERHIDROSIS [None]
  - HYPOMENORRHOEA [None]
  - OVARIAN CYST [None]
  - SINUSITIS [None]
